FAERS Safety Report 6692842-7 (Version None)
Quarter: 2010Q2

REPORT INFORMATION
  Report Type: 
  Country: None (occurrence: None)
  Receive Date: 20100422
  Receipt Date: 20100414
  Transmission Date: 20101027
  Serious: Yes (Hospitalization)
  Sender: FDA-Public Use
  Company Number: DE-ABBOTT-10P-062-0638073-00

PATIENT
  Sex: Male

DRUGS (4)
  1. KALETRA [Suspect]
     Indication: HIV INFECTION
     Dosage: 800/100MG
     Dates: start: 20091211
  2. CELSENTRI [Concomitant]
     Indication: HIV INFECTION
     Route: 048
     Dates: start: 20091211
  3. ISENTRESS [Concomitant]
     Indication: HIV INFECTION
     Route: 048
     Dates: start: 20091211
  4. TRUVADA [Concomitant]
     Indication: HIV INFECTION
     Dosage: 200/300 MILLIGRAMS
     Route: 048
     Dates: start: 20091211

REACTIONS (2)
  - CHROMATURIA [None]
  - PAIN [None]
